FAERS Safety Report 19158462 (Version 2)
Quarter: 2021Q2

REPORT INFORMATION
  Report Type: Report from Study
  Country: US (occurrence: US)
  Receive Date: 20210420
  Receipt Date: 20210624
  Transmission Date: 20210717
  Serious: Yes (Hospitalization)
  Sender: FDA-Public Use
  Company Number: NVSC2021US081298

PATIENT
  Age: 22 Year
  Sex: Female

DRUGS (1)
  1. KESIMPTA [Suspect]
     Active Substance: OFATUMUMAB
     Indication: PRODUCT USED FOR UNKNOWN INDICATION
     Dosage: UNK
     Route: 065
     Dates: start: 20210406

REACTIONS (5)
  - Dysarthria [Unknown]
  - Insomnia [Unknown]
  - Asthenia [Unknown]
  - Fear [Unknown]
  - Chills [Unknown]

NARRATIVE: CASE EVENT DATE: 20210406
